FAERS Safety Report 17420674 (Version 4)
Quarter: 2020Q3

REPORT INFORMATION
  Report Type: Spontaneous
  Country: US (occurrence: US)
  Receive Date: 20200214
  Receipt Date: 20200930
  Transmission Date: 20201102
  Serious: Yes (Other)
  Sender: FDA-Public Use
  Company Number: US-PFIZER INC-2020066682

PATIENT
  Age: 82 Year
  Sex: Female

DRUGS (1)
  1. IBRANCE [Suspect]
     Active Substance: PALBOCICLIB
     Indication: BREAST CANCER FEMALE
     Dosage: 125 MG, CYCLIC (125 MG, ONCE DAILY FOR 21 DAYS, THEN 7 DAYS OFF; REPEAT EVERY 28 DAYS)
     Route: 048

REACTIONS (4)
  - Accident [Unknown]
  - Lip swelling [Recovering/Resolving]
  - Product dose omission issue [Unknown]
  - Wound infection [Unknown]

NARRATIVE: CASE EVENT DATE: 2020
